FAERS Safety Report 7828049-7 (Version None)
Quarter: 2011Q4

REPORT INFORMATION
  Report Type: 
  Country: None (occurrence: None)
  Receive Date: 20111020
  Receipt Date: 20111011
  Transmission Date: 20120403
  Serious: Yes (Other)
  Sender: FDA-Public Use
  Company Number: GB-GLAXOSMITHKLINE-B0754335A

PATIENT
  Sex: Male

DRUGS (2)
  1. CLOBETASOL PROPIONATE [Suspect]
     Indication: PRODUCT USED FOR UNKNOWN INDICATION
     Route: 065
  2. PROSTEP [Suspect]
     Indication: PROSTATE CANCER
     Route: 065
     Dates: start: 20110924

REACTIONS (3)
  - RASH [None]
  - URTICARIA [None]
  - DRUG ERUPTION [None]
